FAERS Safety Report 19994329 (Version 3)
Quarter: 2022Q2

REPORT INFORMATION
  Report Type: Report from Study
  Country: US (occurrence: US)
  Receive Date: 20211025
  Receipt Date: 20220401
  Transmission Date: 20220721
  Serious: Yes (Other)
  Sender: FDA-Public Use
  Company Number: US-SHIRE-US202010562

PATIENT
  Sex: Female
  Weight: 71 kg

DRUGS (4)
  1. HUMAN IMMUNOGLOBULIN G [Suspect]
     Active Substance: HUMAN IMMUNOGLOBULIN G
     Indication: Primary immunodeficiency syndrome
     Dosage: UNK
     Route: 058
  2. CUVITRU [Suspect]
     Active Substance: HUMAN IMMUNOGLOBULIN G
     Indication: Primary immunodeficiency syndrome
     Dosage: 11 GRAM, 1/WEEK
     Route: 058
     Dates: start: 201912
  3. CUVITRU [Suspect]
     Active Substance: HUMAN IMMUNOGLOBULIN G
     Indication: Immunodeficiency common variable
  4. FASENRA [Concomitant]
     Active Substance: BENRALIZUMAB
     Indication: Eosinophilic oesophagitis
     Dosage: UNK
     Route: 065

REACTIONS (6)
  - Myocardial infarction [Recovering/Resolving]
  - Injection site bruising [Unknown]
  - Blood creatinine decreased [Unknown]
  - Dyspepsia [Unknown]
  - Sinus disorder [Unknown]
  - Atrial flutter [Unknown]
